FAERS Safety Report 23772134 (Version 1)
Quarter: 2024Q2

REPORT INFORMATION
  Report Type: Spontaneous
  Country: US (occurrence: US)
  Receive Date: 20240423
  Receipt Date: 20240423
  Transmission Date: 20240716
  Serious: No
  Sender: FDA-Public Use
  Company Number: US-Accord-368718

PATIENT
  Sex: Female

DRUGS (1)
  1. TEMOZOLOMIDE [Suspect]
     Active Substance: TEMOZOLOMIDE
     Indication: Brain neoplasm
     Dates: end: 20230619

REACTIONS (4)
  - Fatigue [Unknown]
  - Anaemia [Unknown]
  - Hypertransaminasaemia [Unknown]
  - Rash [Unknown]
